FAERS Safety Report 6892459-5 (Version None)
Quarter: 2010Q3

REPORT INFORMATION
  Report Type: 
  Country: None (occurrence: None)
  Receive Date: 20100731
  Receipt Date: 20080516
  Transmission Date: 20110219
  Serious: No
  Sender: FDA-Public Use
  Company Number: US-PFIZER INC-2008034267

PATIENT
  Sex: Female
  Weight: 43.636 kg

DRUGS (4)
  1. DEPO-MEDROL [Suspect]
     Indication: NECK PAIN
     Dates: start: 20080327
  2. DEPO-MEDROL [Suspect]
     Indication: MUSCULOSKELETAL PAIN
  3. LORAZEPAM [Concomitant]
     Indication: AGORAPHOBIA
  4. DARVOCET [Concomitant]
     Indication: NECK PAIN

REACTIONS (2)
  - BACK PAIN [None]
  - HEADACHE [None]
